FAERS Safety Report 5830829-4 (Version None)
Quarter: 2008Q3

REPORT INFORMATION
  Report Type: 
  Country: None (occurrence: None)
  Receive Date: 20080801
  Receipt Date: 20071218
  Transmission Date: 20090109
  Serious: No
  Sender: FDA-Public Use
  Company Number: US-BRISTOL-MYERS SQUIBB COMPANY-14018022

PATIENT
  Sex: Male
  Weight: 72 kg

DRUGS (17)
  1. WARFARIN SODIUM [Suspect]
     Indication: BLOOD GLUCOSE
     Dosage: 1 DOSAGE FORM = 2.5 MG X 2 TABLETS 3 DAYS A WEEK AND 1.5 MG TABLETS 4 DAYS A WEEK.
  2. NORVASC [Concomitant]
  3. COZAAR [Concomitant]
  4. LANOXIN [Concomitant]
  5. ZOCOR [Concomitant]
  6. LASIX [Concomitant]
  7. GLUCOTROL [Concomitant]
  8. GLUCOPHAGE [Concomitant]
  9. PLAVIX [Concomitant]
  10. IMDUR [Concomitant]
  11. NITROGLYCERIN [Concomitant]
  12. ASPIRIN [Concomitant]
  13. ASCORBIC ACID [Concomitant]
  14. VITAMIN E [Concomitant]
  15. ACIDOPHILUS [Concomitant]
  16. SELENIUM [Concomitant]
  17. CENTRUM [Concomitant]

REACTIONS (1)
  - SKIN DISCOLOURATION [None]
